FAERS Safety Report 12561809 (Version 1)
Quarter: 2016Q3

REPORT INFORMATION
  Report Type: Report from Study
  Country: US (occurrence: US)
  Receive Date: 20160715
  Receipt Date: 20160715
  Transmission Date: 20161109
  Serious: Yes (Other)
  Sender: FDA-Public Use
  Company Number: US-PFIZER INC-2016334005

PATIENT
  Sex: Male

DRUGS (8)
  1. IFOSFAMIDE. [Suspect]
     Active Substance: IFOSFAMIDE
     Indication: TESTIS CANCER
     Dosage: 2000 MG/M2, CYCLIC (PART A, OVER 4 HOURS DAILY, DAYS 2-4, EVERY 14 TO 21 DAYS)
     Route: 042
  2. PACLITAXEL. [Suspect]
     Active Substance: PACLITAXEL
     Indication: TESTIS CANCER
     Dosage: 200 MG/M2, CYCLIC (PART A, OVER 3 HOURS ON DAY 1, ADMINISTERED EVERY 14 TO 21 DAYS)
     Route: 042
  3. PACLITAXEL. [Suspect]
     Active Substance: PACLITAXEL
     Dosage: HIGH DOSE, CYCLIC (PART B, 2 CYCLES, 200 OR 250 MG/M2  OVER 3 HOURS ON DAY 1 EVERY 21 TO 28 DAYS)
     Route: 042
  4. MESNA. [Concomitant]
     Active Substance: MESNA
     Indication: GERM CELL NEOPLASM
     Dosage: ADMINISTERED EVERY 14 TO 21 DAYS
  5. GRANULOCYTE COLONY STIMULATING FACTOR [Concomitant]
     Active Substance: GRANULOCYTE COLONY-STIMULATING FACTOR NOS
     Indication: HAEMATOPOIETIC STEM CELL MOBILISATION
     Dosage: 10 MG/KG, DAILY (FROM DAY 3 UNTIL ADEQUATE COLLECTION OR NEUTROPHIL RECOVERY)
     Route: 058
  6. CARBOPLATIN. [Suspect]
     Active Substance: CARBOPLATIN
     Indication: TESTIS CANCER
     Dosage: CYCLIC (PART B, 2 CYCLES, AUC OF 7 OR 8 OVER 1 HOUR DAILY, ON DAYS 1-3 EVERY 21 TO 28 DAYS)
     Route: 042
  7. IFOSFAMIDE. [Suspect]
     Active Substance: IFOSFAMIDE
     Dosage: HIGH DOSE, CYCLIC (PART B, 2000 MG/M2 OR 2667 MG/M2 OR 3330 MG DAILY OVER 2-3 HOURS ON DAYS 1-3)
     Route: 042
  8. GRANULOCYTE COLONY STIMULATING FACTOR [Concomitant]
     Active Substance: GRANULOCYTE COLONY-STIMULATING FACTOR NOS
     Indication: TRANSPLANT
     Dosage: 6 MG, 6 HOURS AFTER STEM CELL REINFUSION ON DAY 5 (PEGYLATED)
     Route: 058

REACTIONS (1)
  - Chronic kidney disease [Not Recovered/Not Resolved]
